FAERS Safety Report 25307985 (Version 1)
Quarter: 2025Q2

REPORT INFORMATION
  Report Type: Spontaneous
  Country: US (occurrence: US)
  Receive Date: 20250513
  Receipt Date: 20250513
  Transmission Date: 20250717
  Serious: No
  Sender: GALPHARM INTERNATIONAL
  Company Number: US-PERRIGO-24US004878

PATIENT
  Age: 75 Year
  Sex: Male
  Weight: 95.238 kg

DRUGS (1)
  1. MICONAZOLE 3 COMBINATION PACK [Suspect]
     Active Substance: MICONAZOLE NITRATE
     Indication: Constipation
     Dosage: 200 MG, QHS
     Route: 054
     Dates: start: 20240506, end: 20240516

REACTIONS (3)
  - Drug effective for unapproved indication [Unknown]
  - Incorrect route of product administration [Unknown]
  - Product use issue [Unknown]

NARRATIVE: CASE EVENT DATE: 20240506
